FAERS Safety Report 7767318-6 (Version None)
Quarter: 2011Q3

REPORT INFORMATION
  Report Type: 
  Country: None (occurrence: None)
  Receive Date: 20110922
  Receipt Date: 20110325
  Transmission Date: 20111222
  Serious: No
  Sender: FDA-Public Use
  Company Number: US-ASTRAZENECA-2011SE17131

PATIENT
  Age: 6105 Day
  Sex: Female
  Weight: 74.8 kg

DRUGS (3)
  1. SEROQUEL [Suspect]
     Indication: POST-TRAUMATIC STRESS DISORDER
     Route: 048
     Dates: start: 20080101, end: 20110324
  2. ZOLOFT [Concomitant]
     Indication: DEPRESSION
     Route: 048
     Dates: start: 20080101
  3. SEROQUEL [Suspect]
     Dosage: 50 MG EVERY DAY BEFORE NOON
     Route: 048
     Dates: start: 20080101, end: 20110324

REACTIONS (6)
  - DRUG WITHDRAWAL SYNDROME [None]
  - DECREASED APPETITE [None]
  - VISUAL IMPAIRMENT [None]
  - VOMITING [None]
  - TREMOR [None]
  - DRUG DOSE OMISSION [None]
